FAERS Safety Report 13241724 (Version 2)
Quarter: 2020Q1

REPORT INFORMATION
  Report Type: Spontaneous
  Country: US (occurrence: US)
  Receive Date: 20170217
  Receipt Date: 20200309
  Transmission Date: 20200409
  Serious: No
  Sender: FDA-Public Use
  Company Number: US-PFIZER INC-2017063841

PATIENT
  Age: 56 Year
  Sex: Female

DRUGS (2)
  1. XELJANZ XR [Suspect]
     Active Substance: TOFACITINIB CITRATE
     Indication: RHEUMATOID ARTHRITIS
     Dosage: 11 MG, 1X/DAY
     Route: 048
  2. XELJANZ XR [Suspect]
     Active Substance: TOFACITINIB CITRATE
     Dosage: 11 MG, 1X/DAY
     Route: 048
     Dates: start: 202001

REACTIONS (7)
  - Pain in extremity [Not Recovered/Not Resolved]
  - Tenderness [Unknown]
  - Depressed mood [Unknown]
  - Joint dislocation [Unknown]
  - Arthralgia [Not Recovered/Not Resolved]
  - Hand deformity [Unknown]
  - Grip strength decreased [Unknown]
